FAERS Safety Report 8056947-0 (Version None)
Quarter: 2012Q1

REPORT INFORMATION
  Report Type: 
  Country: None (occurrence: None)
  Receive Date: 20120119
  Receipt Date: 20120111
  Transmission Date: 20120608
  Serious: Yes (Hospitalization, Other)
  Sender: FDA-Public Use
  Company Number: US-ACTELION-A-NJ2011-47701

PATIENT

DRUGS (3)
  1. EPOPROSTENOL SODIUM [Suspect]
     Dosage: 15 NG/KG, PER MIN
     Route: 041
     Dates: start: 20110101
  2. TRACLEER [Suspect]
     Indication: PULMONARY ARTERIAL HYPERTENSION
     Dosage: UNK
     Route: 048
     Dates: start: 20101105
  3. EPOPROSTENOL SODIUM [Suspect]
     Indication: PULMONARY ARTERIAL HYPERTENSION
     Dosage: 12 NG/KG, PER MIN
     Route: 041
     Dates: start: 20110512

REACTIONS (6)
  - HYPOXIA [None]
  - DISEASE PROGRESSION [None]
  - DYSPNOEA [None]
  - VOMITING [None]
  - PULMONARY ARTERIAL HYPERTENSION [None]
  - SYNCOPE [None]
